FAERS Safety Report 7623454-6 (Version None)
Quarter: 2011Q3

REPORT INFORMATION
  Report Type: 
  Country: None (occurrence: None)
  Receive Date: 20110720
  Receipt Date: 20110705
  Transmission Date: 20111222
  Serious: Yes (Other)
  Sender: FDA-Public Use
  Company Number: NL-SANOFI-AVENTIS-2011SA044351

PATIENT
  Age: 80 Year
  Sex: Female
  Weight: 94 kg

DRUGS (9)
  1. METOPROLOL TARTRATE [Concomitant]
     Route: 065
  2. DILTIAZEM [Concomitant]
     Route: 065
  3. FUROSEMIDE [Concomitant]
     Route: 065
     Dates: end: 20101210
  4. VALSARTAN [Concomitant]
     Route: 065
  5. ACENOCOUMAROL [Concomitant]
     Route: 065
  6. DRONEDARONE HCL [Suspect]
     Indication: ATRIAL FIBRILLATION
     Route: 048
     Dates: start: 20101129
  7. VALSARTAN [Concomitant]
     Route: 065
     Dates: start: 20101210
  8. METFORMIN HCL [Concomitant]
     Route: 065
  9. ATORVASTATIN [Concomitant]
     Route: 065

REACTIONS (1)
  - CARDIAC FAILURE [None]
